FAERS Safety Report 5896946-8 (Version None)
Quarter: 2008Q3

REPORT INFORMATION
  Report Type: 
  Country: None (occurrence: None)
  Receive Date: 20080924
  Receipt Date: 20080626
  Transmission Date: 20090109
  Serious: Yes (Other)
  Sender: FDA-Public Use
  Company Number: US-ASTRAZENECA-2008UW05749

PATIENT
  Age: 46 Year
  Sex: Female

DRUGS (3)
  1. SEROQUEL [Suspect]
     Dosage: 100 TO 300 MG
     Route: 048
     Dates: start: 20000101
  2. SEROQUEL [Suspect]
     Route: 048
  3. MULTIPLE MEDICATIONS [Concomitant]

REACTIONS (2)
  - CONVULSION [None]
  - TYPE 2 DIABETES MELLITUS [None]
